FAERS Safety Report 16033151 (Version 1)
Quarter: 2019Q1

REPORT INFORMATION
  Report Type: Spontaneous
  Country: GB (occurrence: GB)
  Receive Date: 20190305
  Receipt Date: 20190305
  Transmission Date: 20190418
  Serious: Yes (Other)
  Sender: FDA-Public Use
  Company Number: GB-ACCORD-110283

PATIENT
  Age: 54 Year
  Sex: Female
  Weight: 61.23 kg

DRUGS (6)
  1. ALENDRONATE SODIUM/ALENDRONIC ACID [Concomitant]
  2. DECAPEPTYL SR [Concomitant]
     Active Substance: TRIPTORELIN
  3. GABAPENTIN. [Concomitant]
     Active Substance: GABAPENTIN
  4. CALCICHEW D3 [Concomitant]
     Active Substance: CALCIUM\CHOLECALCIFEROL
  5. ACETYLSALICYLIC ACID [Concomitant]
     Active Substance: ASPIRIN
  6. LETROZOLE. [Suspect]
     Active Substance: LETROZOLE
     Indication: BREAST CANCER
     Dates: start: 20180210, end: 20180604

REACTIONS (2)
  - Joint stiffness [Recovering/Resolving]
  - Bone pain [Recovering/Resolving]
